FAERS Safety Report 17041580 (Version 1)
Quarter: 2019Q4

REPORT INFORMATION
  Report Type: Spontaneous
  Country: US (occurrence: US)
  Receive Date: 20191016
  Receipt Date: 20191016
  Transmission Date: 20200122
  Serious: No
  Sender: FDA-Public Use
  Company Number: None

PATIENT
  Age: 46 Year
  Sex: Male

DRUGS (1)
  1. SIMPONI [Suspect]
     Active Substance: GOLIMUMAB
     Indication: CROHN^S DISEASE
     Route: 058
     Dates: start: 20180314

REACTIONS (4)
  - Back pain [None]
  - Diarrhoea [None]
  - Product storage error [None]
  - Hyperhidrosis [None]

NARRATIVE: CASE EVENT DATE: 20191001
